FAERS Safety Report 7879895-5 (Version None)
Quarter: 2011Q4

REPORT INFORMATION
  Report Type: 
  Country: None (occurrence: None)
  Receive Date: 20111101
  Receipt Date: 20111021
  Transmission Date: 20120403
  Serious: Yes (Hospitalization)
  Sender: FDA-Public Use
  Company Number: BR-MERCK-1110BRA00078

PATIENT
  Age: 58 Year
  Sex: Male
  Weight: 66 kg

DRUGS (4)
  1. ASPIRIN [Concomitant]
     Route: 065
  2. VYTORIN [Suspect]
     Route: 065
  3. CLOPIDOGREL [Concomitant]
     Route: 065
  4. ATENOLOL [Concomitant]
     Route: 065

REACTIONS (13)
  - BLOOD PRESSURE INCREASED [None]
  - HYPERPARATHYROIDISM [None]
  - GLUCAGONOMA [None]
  - PULMONARY EMBOLISM [None]
  - DIVERTICULUM [None]
  - THYROID DISORDER [None]
  - HEPATIC MASS [None]
  - HYPERGLYCAEMIA [None]
  - MULTIPLE ENDOCRINE ADENOMATOSIS TYPE I [None]
  - KETOACIDOSIS [None]
  - WEIGHT DECREASED [None]
  - HYPOCALCAEMIA [None]
  - DEHYDRATION [None]
